FAERS Safety Report 7104988-X (Version None)
Quarter: 2010Q4

REPORT INFORMATION
  Report Type: 
  Country: None (occurrence: None)
  Receive Date: 20101116
  Receipt Date: 20101108
  Transmission Date: 20110411
  Serious: Yes (Hospitalization)
  Sender: FDA-Public Use
  Company Number: PHHO2004BE13781

PATIENT
  Sex: Female

DRUGS (1)
  1. ELIDEL [Suspect]
     Indication: DERMATITIS ATOPIC
     Dosage: APPLIED TWICE DAILY
     Route: 061
     Dates: start: 20040416

REACTIONS (3)
  - ARTHRITIS BACTERIAL [None]
  - MUSCULOSKELETAL DISCOMFORT [None]
  - PYREXIA [None]
